FAERS Safety Report 9640199 (Version 1)
Quarter: 2013Q4

REPORT INFORMATION
  Report Type: Spontaneous
  Country: US (occurrence: US)
  Receive Date: 20131023
  Receipt Date: 20131023
  Transmission Date: 20140711
  Serious: No
  Sender: FDA-Public Use
  Company Number: US-PFIZER INC-2013298946

PATIENT
  Age: 59 Year
  Sex: Female

DRUGS (20)
  1. CARBOPLATIN [Suspect]
     Indication: ENDOMETRIAL CANCER METASTATIC
     Dosage: UNK
     Dates: start: 20130820
  2. PACLITAXEL [Suspect]
     Indication: ENDOMETRIAL CANCER METASTATIC
     Dosage: UNK
     Dates: start: 20130820
  3. NEULASTA [Suspect]
     Indication: PROPHYLAXIS
     Dosage: 6 MG, UNK
     Route: 058
  4. ACIDOPHILUS [Concomitant]
     Dosage: 175 MG, UNK
  5. ACTOS [Concomitant]
     Dosage: 15 MG, UNK
  6. CALCIUM [Concomitant]
     Dosage: 500 MG, UNK
  7. CHROMIUM PICOLINATE [Concomitant]
     Dosage: 400 UG, UNK
  8. CINNAMON [Concomitant]
     Dosage: 500 MG, UNK
  9. CLARITIN [Concomitant]
     Dosage: 10 MG, UNK
  10. CRANBERRY [Concomitant]
     Dosage: 500 MG, UNK
  11. FLONASE [Concomitant]
     Dosage: 50 UG, UNK
  12. HYDROCODONE [Concomitant]
     Dosage: 5 MG, UNK
  13. ACETAMINOPHEN [Concomitant]
     Dosage: 500 MG, UNK
  14. HYZAAR [Concomitant]
     Dosage: 100 MG-25 MG TABLET
  15. LANTUS [Concomitant]
     Dosage: 100 UNIT/ML SUB-Q
     Route: 058
  16. NOVOLOG [Concomitant]
     Dosage: 100 UNIT/ML
     Route: 058
  17. ONDANSETRON [Concomitant]
     Dosage: 4 MG, UNK
     Route: 048
  18. VITAMIN C [Concomitant]
     Dosage: 500 MG, UNK
  19. ZOLOFT [Concomitant]
     Dosage: 50 MG, UNK
  20. LOVENOX [Concomitant]
     Indication: ANTICOAGULANT THERAPY

REACTIONS (6)
  - Upper respiratory tract infection [Recovered/Resolved]
  - Back pain [Unknown]
  - Fatigue [Unknown]
  - Nausea [Recovered/Resolved]
  - Haemoglobin decreased [Unknown]
  - Rosacea [Unknown]
